FAERS Safety Report 4410606-1 (Version None)
Quarter: 2004Q3

REPORT INFORMATION
  Report Type: 
  Country: None (occurrence: None)
  Receive Date: 20040726
  Receipt Date: 20040714
  Transmission Date: 20050211
  Serious: Yes (Hospitalization)
  Sender: FDA-Public Use
  Company Number: 0400027EN0020P

PATIENT
  Age: 15 Year
  Sex: Female
  Weight: 50 kg

DRUGS (5)
  1. ONCASPAR (PEG-L-ASPARGINASE) [Suspect]
     Indication: ACUTE LYMPHOCYTIC LEUKAEMIA
     Dosage: 2500 U/M2 Q2WEEKS IM
     Route: 030
     Dates: start: 20040426, end: 20040624
  2. ZANTAC [Suspect]
     Indication: GASTRITIS
     Dosage: 150 MG BID PO
     Route: 048
     Dates: start: 20040301, end: 20040713
  3. ZANTAC [Suspect]
     Indication: NAUSEA
     Dosage: 150 MG BID PO
     Route: 048
     Dates: start: 20040301, end: 20040713
  4. DOXYCYCLINE [Concomitant]
  5. BENADRYL [Concomitant]

REACTIONS (7)
  - ARTHRALGIA [None]
  - DYSPNOEA [None]
  - ECZEMA [None]
  - INJECTION SITE ERYTHEMA [None]
  - JOINT WARMTH [None]
  - SWELLING FACE [None]
  - URTICARIA GENERALISED [None]
